FAERS Safety Report 6679549-7 (Version None)
Quarter: 2010Q2

REPORT INFORMATION
  Report Type: 
  Country: None (occurrence: None)
  Receive Date: 20100413
  Receipt Date: 20100406
  Transmission Date: 20101027
  Serious: Yes (Other)
  Sender: FDA-Public Use
  Company Number: PHHY2010US21491

PATIENT
  Sex: Female

DRUGS (9)
  1. EXTAVIA [Suspect]
     Indication: MULTIPLE SCLEROSIS
     Dosage: 0.25 MG, QOD
     Route: 058
     Dates: start: 20100205
  2. PROZAC [Concomitant]
     Dosage: 20 MG, QD
  3. LIPITOR [Concomitant]
     Dosage: 10 MG, QD
  4. LEVOXYL [Concomitant]
     Dosage: 75 UG, QD
  5. VERAPAMIL [Concomitant]
     Indication: HYPERTENSION
     Dosage: 240 SR, QAM
  6. FOSAMAX [Concomitant]
     Indication: OSTEOPOROSIS
     Dosage: 70 MG, QW
     Route: 048
  7. CALCIUM [Concomitant]
     Dosage: UNK
  8. VITAMIN D [Concomitant]
     Dosage: UNK
  9. LYSINE [Concomitant]
     Dosage: UNK

REACTIONS (3)
  - HYPOAESTHESIA [None]
  - PAIN IN EXTREMITY [None]
  - SPINAL MENINGEAL CYST [None]
